FAERS Safety Report 20755240 (Version 2)
Quarter: 2022Q2

REPORT INFORMATION
  Report Type: Report from Study
  Country: BG (occurrence: BG)
  Receive Date: 20220427
  Receipt Date: 20220521
  Transmission Date: 20220721
  Serious: Yes (Other)
  Sender: FDA-Public Use
  Company Number: BG-CELLTRION INC.-2022BG004824

PATIENT

DRUGS (7)
  1. TRASTUZUMAB [Suspect]
     Active Substance: TRASTUZUMAB
     Indication: HER2 positive breast cancer
     Dosage: 450 MG, Q4WEEKS (ON 26/SEP/2019 MOST RECENT DOSE OF TRASTUZUMAB PRIOR TO THE EVENT)
     Route: 041
     Dates: start: 20190829
  2. DOCETAXEL [Suspect]
     Active Substance: DOCETAXEL
     Indication: HER2 positive breast cancer
     Dosage: 126 MG, Q4WEEKS (ON 26/SEP/2019 MOST RECENT DOSE OF DOCETAXEL PRIOR TO THE EVENT)
     Route: 042
     Dates: start: 20190829
  3. PERTUZUMAB [Suspect]
     Active Substance: PERTUZUMAB
     Indication: HER2 positive breast cancer
     Dosage: 840 MG EVERY 3 WEEKS (MOST RECENT DOSE PRIOR TO THE EVENT: 01/JUN/2020)
     Route: 042
     Dates: start: 20200511
  4. PERTUZUMAB [Suspect]
     Active Substance: PERTUZUMAB
     Dosage: 420 MG EVERY 3 WEEKS
     Route: 042
     Dates: start: 20200601
  5. RENOVIA [Concomitant]
     Dosage: UNK
     Dates: start: 20160615
  6. ZOMETA [Concomitant]
     Active Substance: ZOLEDRONIC ACID
     Indication: Osteoporotic fracture
     Dosage: 4 MG, MONTHLY
     Route: 042
     Dates: start: 20200923
  7. OLMESTA [Concomitant]
     Dosage: UNK
     Dates: start: 20160615

REACTIONS (3)
  - Osteoporotic fracture [Not Recovered/Not Resolved]
  - Spinal pain [Recovered/Resolved]
  - Off label use [Unknown]

NARRATIVE: CASE EVENT DATE: 20200320
